FAERS Safety Report 17762052 (Version 1)
Quarter: 2020Q2

REPORT INFORMATION
  Report Type: Spontaneous
  Country: IE (occurrence: IE)
  Receive Date: 20200508
  Receipt Date: 20200508
  Transmission Date: 20200714
  Serious: Yes (Other)
  Sender: FDA-Public Use
  Company Number: IE-ALLERGAN-1941646US

PATIENT
  Sex: Female

DRUGS (2)
  1. DAPSONE UNK [Suspect]
     Active Substance: DAPSONE
     Indication: GRANULOMA ANNULARE
  2. INSULIN [Concomitant]
     Active Substance: INSULIN NOS

REACTIONS (5)
  - Hyperglycaemia [Unknown]
  - Off label use [Unknown]
  - Laboratory test interference [Unknown]
  - Methaemoglobinaemia [Unknown]
  - Haemolysis [Unknown]
